FAERS Safety Report 13825844 (Version 2)
Quarter: 2018Q2

REPORT INFORMATION
  Report Type: Spontaneous
  Country: RU (occurrence: RU)
  Receive Date: 20170802
  Receipt Date: 20180511
  Transmission Date: 20180711
  Serious: Yes (Other)
  Sender: FDA-Public Use
  Company Number: RU-ASTRAZENECA-2017SE77750

PATIENT
  Age: 71 Year
  Sex: Male
  Weight: 97 kg

DRUGS (6)
  1. LIPRIMAR [Concomitant]
     Active Substance: ATORVASTATIN CALCIUM
  2. BETALOK [Concomitant]
     Active Substance: METOPROLOL SUCCINATE
  3. TROMBO ASS [Concomitant]
     Active Substance: ASPIRIN
  4. GLUCOFAGE [Concomitant]
     Active Substance: METFORMIN HYDROCHLORIDE
  5. TRIGRIM [Concomitant]
  6. BRILINTA [Suspect]
     Active Substance: TICAGRELOR
     Indication: CORONARY ARTERY BYPASS
     Route: 048
     Dates: start: 20140314

REACTIONS (6)
  - Product prescribing issue [Not Recovered/Not Resolved]
  - Body height abnormal [Unknown]
  - Off label use [Not Recovered/Not Resolved]
  - Type 2 diabetes mellitus [Not Recovered/Not Resolved]
  - Joint dislocation [Not Recovered/Not Resolved]
  - Weight abnormal [Unknown]

NARRATIVE: CASE EVENT DATE: 201704
